FAERS Safety Report 5664332-1 (Version None)
Quarter: 2008Q1

REPORT INFORMATION
  Report Type: 
  Country: None (occurrence: None)
  Receive Date: 20080314
  Receipt Date: 20080229
  Transmission Date: 20080703
  Serious: Yes (Hospitalization, Other)
  Sender: FDA-Public Use
  Company Number: US-AMGEN-US267696

PATIENT
  Age: 31 Year
  Sex: Female

DRUGS (33)
  1. EPOGEN [Suspect]
     Indication: RENAL FAILURE CHRONIC
     Dates: start: 20070901, end: 20080223
  2. ARANESP [Suspect]
     Indication: RENAL FAILURE CHRONIC
     Route: 058
     Dates: start: 20080201
  3. LINEZOLID [Concomitant]
     Dates: start: 20080113, end: 20080223
  4. IMIPENEM [Concomitant]
     Dates: start: 20080204, end: 20080222
  5. TOBRAMYCIN [Concomitant]
     Dates: start: 20080204, end: 20080222
  6. LISINOPRIL [Concomitant]
     Dates: start: 20080204, end: 20080222
  7. METOPROLOL TARTRATE [Concomitant]
     Dates: start: 20080204
  8. CLONIDINE [Concomitant]
     Dates: start: 20080204, end: 20080222
  9. SYNTHROID [Concomitant]
     Dates: start: 20080204
  10. PROTONIX [Concomitant]
     Dates: start: 20080204
  11. VITAMIN CAP [Concomitant]
     Dates: start: 20080204
  12. REGLAN [Concomitant]
     Dates: start: 20080204
  13. VICODIN [Concomitant]
     Dates: start: 20080204
  14. TYLENOL (CAPLET) [Concomitant]
     Dates: start: 20080204
  15. PHENERGAN HCL [Concomitant]
     Dates: start: 20080204
  16. ASPIRIN [Concomitant]
     Dates: start: 20080204
  17. LANTUS [Concomitant]
     Dates: start: 20080204
  18. MORPHINE [Concomitant]
     Dates: start: 20080204
  19. NASALIDE [Concomitant]
     Dates: start: 20080222, end: 20080229
  20. LEVAQUIN [Concomitant]
     Dates: start: 20080222
  21. LISINOPRIL [Concomitant]
     Dates: start: 20080222
  22. KAYEXALATE [Concomitant]
     Dates: start: 20080222, end: 20080229
  23. ATIVAN [Concomitant]
     Dates: start: 20080222
  24. ZOFRAN [Concomitant]
     Dates: start: 20080222, end: 20080229
  25. DILAUDID [Concomitant]
     Dates: start: 20080222, end: 20080229
  26. AMBIEN [Concomitant]
     Dates: start: 20080222, end: 20080229
  27. VANCOMYCIN [Concomitant]
     Dates: start: 20080223
  28. IRON [Concomitant]
     Route: 042
     Dates: start: 20080209, end: 20080222
  29. IRON [Concomitant]
     Route: 048
     Dates: start: 20080222
  30. COLACE [Concomitant]
     Dates: start: 20080229
  31. VITAMIN B-12 [Concomitant]
     Dates: start: 20080229
  32. FOLATE SODIUM [Concomitant]
     Dates: start: 20080229
  33. PYRIDOXINE [Concomitant]
     Dates: start: 20080229

REACTIONS (6)
  - HAEMOGLOBIN DECREASED [None]
  - PLATELET COUNT INCREASED [None]
  - PNEUMONIA KLEBSIELLA [None]
  - PNEUMONIA STAPHYLOCOCCAL [None]
  - THERAPEUTIC RESPONSE DECREASED [None]
  - WHITE BLOOD CELL COUNT INCREASED [None]
